FAERS Safety Report 5726618-1 (Version None)
Quarter: 2008Q2

REPORT INFORMATION
  Report Type: 
  Country: None (occurrence: None)
  Receive Date: 20080502
  Receipt Date: 20080417
  Transmission Date: 20081010
  Serious: Yes (Life-Threatening, Hospitalization)
  Sender: FDA-Public Use
  Company Number: CA-BAYER-200811621BCC

PATIENT
  Age: 0 Hour
  Sex: Male
  Weight: 9 kg

DRUGS (2)
  1. ASPIRIN [Suspect]
     Indication: DRUG USE FOR UNKNOWN INDICATION
     Route: 061
     Dates: start: 20060601, end: 20060706
  2. ASPIRIN [Suspect]
     Route: 061
     Dates: start: 20060601, end: 20060706

REACTIONS (10)
  - ALANINE AMINOTRANSFERASE INCREASED [None]
  - ANION GAP ABNORMAL [None]
  - ASPARTATE AMINOTRANSFERASE INCREASED [None]
  - BLOOD PH DECREASED [None]
  - DEPRESSED LEVEL OF CONSCIOUSNESS [None]
  - DISORIENTATION [None]
  - DISTURBANCE IN ATTENTION [None]
  - GAIT DISTURBANCE [None]
  - METABOLIC ACIDOSIS [None]
  - TACHYPNOEA [None]
